FAERS Safety Report 23713807 (Version 1)
Quarter: 2024Q2

REPORT INFORMATION
  Report Type: Spontaneous
  Country: US (occurrence: US)
  Receive Date: 20240405
  Receipt Date: 20240405
  Transmission Date: 20240716
  Serious: No
  Sender: FDA-Public Use
  Company Number: US-MYLANLABS-2024M1026546

PATIENT
  Sex: Female

DRUGS (1)
  1. SCOPOLAMINE TRANDERMAL SYSTEM [Suspect]
     Active Substance: SCOPOLAMINE
     Indication: Secretion discharge
     Dosage: UNK (EVERY 72 HOURS)
     Route: 065

REACTIONS (3)
  - Off label use [Unknown]
  - Product packaging quantity issue [Unknown]
  - Product quality issue [Unknown]
